FAERS Safety Report 9971196 (Version 2)
Quarter: 2014Q1

REPORT INFORMATION
  Report Type: Report from Study
  Country: US (occurrence: US)
  Receive Date: 20140306
  Receipt Date: 20140306
  Transmission Date: 20141002
  Serious: No
  Sender: FDA-Public Use
  Company Number: US-ABBVIE-13P-163-1108002-00

PATIENT
  Age: 52 Year
  Sex: Female

DRUGS (16)
  1. HUMIRA [Suspect]
     Indication: CROHN^S DISEASE
     Dates: start: 20110103, end: 201106
  2. HUMIRA [Suspect]
     Indication: RHEUMATOID ARTHRITIS
  3. CELEBREX [Concomitant]
     Indication: RHEUMATOID ARTHRITIS
  4. PERCOCET [Concomitant]
     Indication: PAIN
     Dosage: 10/325 MG AS NEEDED
  5. CLONAZEPAM [Concomitant]
     Indication: INSOMNIA
     Dosage: 2MG AT BEDTIME
  6. BUTALBITAL COMPOUND [Concomitant]
     Indication: MIGRAINE
  7. BENTYL [Concomitant]
     Indication: ABDOMINAL PAIN UPPER
  8. PRILOSEC [Concomitant]
     Indication: GASTROOESOPHAGEAL REFLUX DISEASE
     Dosage: 20MG DAILY
  9. SOMA [Concomitant]
     Indication: FIBROMYALGIA
  10. METOPROLOL [Concomitant]
     Indication: HYPERTENSION
  11. GABAPENTIN [Concomitant]
     Indication: FIBROMYALGIA
  12. GABAPENTIN [Concomitant]
  13. PROTONIX [Concomitant]
     Indication: DYSPEPSIA
  14. PROTONIX [Concomitant]
     Indication: GASTROOESOPHAGEAL REFLUX DISEASE
  15. METHIMAZOLE [Concomitant]
     Indication: HYPERTHYROIDISM
  16. MOBIC [Concomitant]
     Indication: PRODUCT USED FOR UNKNOWN INDICATION

REACTIONS (12)
  - Hypothyroidism [Unknown]
  - Fistula [Unknown]
  - Fibromyalgia [Unknown]
  - Vitamin D decreased [Unknown]
  - Cardiomegaly [Not Recovered/Not Resolved]
  - Contusion [Not Recovered/Not Resolved]
  - Depression [Not Recovered/Not Resolved]
  - Blood cholesterol increased [Unknown]
  - Hypertension [Unknown]
  - Asthma [Unknown]
  - Crohn^s disease [Unknown]
  - Infected fistula [Unknown]
